FAERS Safety Report 6886950-5 (Version None)
Quarter: 2010Q3

REPORT INFORMATION
  Report Type: 
  Country: None (occurrence: None)
  Receive Date: 20100730
  Receipt Date: 20100720
  Transmission Date: 20110219
  Serious: Yes (Other)
  Sender: FDA-Public Use
  Company Number: IT-JNJFOC-20100708255

PATIENT
  Age: 49 Year
  Sex: Male

DRUGS (6)
  1. ITRACONAZOLE [Suspect]
     Indication: PROPHYLAXIS
     Route: 048
  2. POSACONAZOLE [Suspect]
     Indication: ANTIFUNGAL PROPHYLAXIS
     Route: 065
  3. LIPOSOMAL AMPHOTERICIN B [Suspect]
     Indication: ANTIFUNGAL PROPHYLAXIS
     Route: 065
  4. ANTIBIOTICS [Suspect]
     Indication: PRODUCT USED FOR UNKNOWN INDICATION
     Route: 065
  5. ANTINEOPLASTIC DRUGS [Suspect]
     Indication: ACUTE MYELOID LEUKAEMIA
     Route: 065
  6. VORICONAZOLE [Suspect]
     Indication: ANTIFUNGAL PROPHYLAXIS
     Route: 065

REACTIONS (4)
  - DRUG INEFFECTIVE [None]
  - FUNGAL INFECTION [None]
  - NEUTROPENIA [None]
  - ORGANISING PNEUMONIA [None]
